FAERS Safety Report 8800425 (Version 1)
Quarter: 2012Q4

REPORT INFORMATION
  Report Type: 
  Country: AU (occurrence: AU)
  Receive Date: 20120921
  Receipt Date: 20120921
  Transmission Date: 20130627
  Serious: Yes (Other)
  Sender: FDA-Public Use
  Company Number: PHHY2012AU080757

PATIENT
  Age: 52 Year
  Sex: Female

DRUGS (8)
  1. CARBAMAZEPINE [Suspect]
  2. CEPHALEXIN [Concomitant]
     Dosage: UNK UKN, UNK
  3. LAMOTRIGINE [Concomitant]
     Dosage: UNK UKN, UNK
  4. PARACETAMOL [Concomitant]
     Dosage: UNK UKN, UNK
  5. ROXITHROMYCIN [Concomitant]
     Dosage: UNK UKN, UNK
  6. SALBUTAMOL [Concomitant]
     Dosage: UNK UKN, UNK
  7. VALPROATE SODIUM [Concomitant]
     Dosage: UNK UKN, UNK
  8. TIOTROPIUM [Concomitant]
     Dosage: UNK UKN, UNK

REACTIONS (2)
  - Convulsion [Unknown]
  - Hyponatraemia [Unknown]
